FAERS Safety Report 7324751-4 (Version None)
Quarter: 2011Q1

REPORT INFORMATION
  Report Type: 
  Country: None (occurrence: None)
  Receive Date: 20110301
  Receipt Date: 20110217
  Transmission Date: 20110831
  Serious: Yes (Other)
  Sender: FDA-Public Use
  Company Number: US-ELI_LILLY_AND_COMPANY-US200908006076

PATIENT
  Sex: Female

DRUGS (7)
  1. EVISTA [Suspect]
     Indication: OSTEOPOROSIS
  2. FORTEO [Suspect]
     Dosage: 20 UG, DAILY (1/D)
  3. VITAMIN E /001105/ [Concomitant]
  4. FORTEO [Suspect]
     Indication: OSTEOPOROSIS
     Dosage: 20 UG, UNK
     Dates: start: 20090413
  5. FORTEO [Suspect]
     Dosage: 20 UG, DAILY (1/D)
  6. CALCIUM [Concomitant]
  7. FORTEO [Suspect]
     Dosage: 20 UG, DAILY (1/D)

REACTIONS (14)
  - KIDNEY ENLARGEMENT [None]
  - RENAL INJURY [None]
  - BONE DENSITY DECREASED [None]
  - HYPOAESTHESIA [None]
  - VISION BLURRED [None]
  - LIVER INJURY [None]
  - CONTUSION [None]
  - BACK PAIN [None]
  - VOMITING [None]
  - ABDOMINAL PAIN [None]
  - MUSCLE SPASMS [None]
  - RENAL DISORDER [None]
  - HEPATITIS B [None]
  - FEELING ABNORMAL [None]
